FAERS Safety Report 17030005 (Version 1)
Quarter: 2019Q4

REPORT INFORMATION
  Report Type: Spontaneous
  Country: GB (occurrence: GB)
  Receive Date: 20191114
  Receipt Date: 20191114
  Transmission Date: 20200122
  Serious: Yes (Life-Threatening)
  Sender: FDA-Public Use
  Company Number: GB-ACCORD-160763

PATIENT
  Age: 55 Year
  Sex: Male

DRUGS (5)
  1. MYCOPHENOLIC ACID. [Suspect]
     Active Substance: MYCOPHENOLIC ACID
     Indication: OCULAR SARCOIDOSIS
     Route: 048
     Dates: start: 20180208, end: 20180406
  2. PREDNISOLONE. [Concomitant]
     Active Substance: PREDNISOLONE
  3. OMEPRAZOLE. [Concomitant]
     Active Substance: OMEPRAZOLE
  4. CALCICHEW D3 FORTE [Concomitant]
     Active Substance: CALCIUM\CHOLECALCIFEROL
  5. TIMOLOL. [Concomitant]
     Active Substance: TIMOLOL

REACTIONS (1)
  - Non-Hodgkin^s lymphoma [Not Recovered/Not Resolved]
